FAERS Safety Report 7914259-7 (Version None)
Quarter: 2011Q4

REPORT INFORMATION
  Report Type: 
  Country: None (occurrence: None)
  Receive Date: 20111115
  Receipt Date: 20111102
  Transmission Date: 20120403
  Serious: Yes (Death, Hospitalization, Other)
  Sender: FDA-Public Use
  Company Number: US-BAXTER-2011BH033560

PATIENT
  Sex: Female

DRUGS (4)
  1. DIANEAL [Suspect]
     Indication: PERITONEAL DIALYSIS
     Route: 033
     Dates: end: 20111001
  2. EXTRANEAL [Suspect]
     Indication: PERITONEAL DIALYSIS
     Route: 033
     Dates: end: 20111001
  3. DIANEAL [Suspect]
     Route: 033
     Dates: start: 20111001, end: 20111015
  4. EXTRANEAL [Suspect]
     Route: 033
     Dates: start: 20111001, end: 20111015

REACTIONS (6)
  - SEPSIS [None]
  - UPPER LIMB FRACTURE [None]
  - URINARY TRACT INFECTION [None]
  - MUSCULAR DYSTROPHY [None]
  - UNRESPONSIVE TO STIMULI [None]
  - HYPOTENSION [None]
